FAERS Safety Report 7014818-2 (Version None)
Quarter: 2010Q3

REPORT INFORMATION
  Report Type: 
  Country: None (occurrence: None)
  Receive Date: 20100927
  Receipt Date: 20100719
  Transmission Date: 20110219
  Serious: Yes (Hospitalization)
  Sender: FDA-Public Use
  Company Number: FR-BAYER-201033449GPV

PATIENT
  Age: 73 Year
  Sex: Male

DRUGS (12)
  1. NEXAVAR [Suspect]
     Indication: HEPATIC NEOPLASM MALIGNANT
     Dosage: UNSPECIFIED DAILY DOSE
     Route: 048
     Dates: start: 20070606, end: 20070824
  2. NEXAVAR [Suspect]
     Dosage: STARTED AT NORMAL DOSE AND THEN  AT HALF DOSE
     Route: 048
     Dates: start: 20090101, end: 20090301
  3. NEXAVAR [Suspect]
     Dosage: HALF DOSE
     Route: 048
     Dates: start: 20090301, end: 20100301
  4. NEXAVAR [Suspect]
     Dosage: UNSPECIFIED DAILY DOSE
     Route: 048
     Dates: start: 20070912, end: 20080801
  5. VASTAREL [Concomitant]
     Dates: start: 20091101
  6. BISOPROLOL FUMARATE [Concomitant]
  7. COUMADIN [Concomitant]
  8. KARDEGIC (DL-LYSINE AC!TYLSALICYLATE) [Concomitant]
  9. ZOPICLONE [Concomitant]
  10. DUPHALAC [Concomitant]
  11. FUROSEMIDE [Concomitant]
  12. IPERTEN [Concomitant]

REACTIONS (5)
  - CHEST PAIN [None]
  - DYSPEPSIA [None]
  - PARAESTHESIA [None]
  - SKIN ULCER [None]
  - STAPHYLOCOCCAL ABSCESS [None]
